FAERS Safety Report 10008532 (Version 4)
Quarter: 2014Q1

REPORT INFORMATION
  Report Type: Spontaneous
  Country: DE (occurrence: DE)
  Receive Date: 20140313
  Receipt Date: 20140328
  Transmission Date: 20141002
  Serious: Yes (Hospitalization)
  Sender: FDA-Public Use
  Company Number: ALCN2014DE001351

PATIENT
  Age: 54 Year
  Sex: Female
  Weight: 52 kg

DRUGS (3)
  1. MAXITROL [Suspect]
     Indication: KERATITIS
     Dosage: 1 DF, TID
     Route: 047
     Dates: start: 20140106, end: 20140202
  2. DEXAFLUID [Suspect]
     Dosage: 1 DF, TID
     Route: 047
     Dates: start: 20140203, end: 20140214
  3. DEXAFLUID [Suspect]
     Dosage: 1 DF, BID
     Route: 047
     Dates: end: 20140220

REACTIONS (5)
  - Palpitations [Recovered/Resolved]
  - Blood pressure increased [Unknown]
  - Thyroid pain [Unknown]
  - Gastric disorder [Recovered/Resolved]
  - Drug ineffective [Unknown]
